FAERS Safety Report 6062170-1 (Version None)
Quarter: 2009Q1

REPORT INFORMATION
  Report Type: 
  Country: None (occurrence: None)
  Receive Date: 20090202
  Receipt Date: 20090202
  Transmission Date: 20090719
  Serious: Yes (Other)
  Sender: FDA-Public Use
  Company Number: None

PATIENT
  Age: 12 Year
  Sex: Male
  Weight: 45.3597 kg

DRUGS (2)
  1. RISPERIDONE [Suspect]
     Indication: CONDUCT DISORDER
     Dosage: 0.25 MG BID PO
     Route: 048
     Dates: start: 20070901, end: 20081201
  2. RISPERIDONE [Suspect]
     Indication: CONDUCT DISORDER
     Dosage: 0.25 MG BID PO
     Route: 048
     Dates: start: 20081101, end: 20081201

REACTIONS (2)
  - ANGER [None]
  - PRODUCT QUALITY ISSUE [None]
